FAERS Safety Report 7323651-3 (Version None)
Quarter: 2011Q1

REPORT INFORMATION
  Report Type: 
  Country: None (occurrence: None)
  Receive Date: 20110301
  Receipt Date: 20110215
  Transmission Date: 20110831
  Serious: Yes (Other)
  Sender: FDA-Public Use
  Company Number: PHHY2011US12623

PATIENT
  Sex: Male

DRUGS (3)
  1. TASIGNA [Suspect]
  2. ASPIRIN [Concomitant]
  3. SPRYCEL [Suspect]

REACTIONS (1)
  - PANCREATITIS [None]
